FAERS Safety Report 26189999 (Version 1)
Quarter: 2025Q4

REPORT INFORMATION
  Report Type: Report from Study
  Country: US (occurrence: US)
  Receive Date: 20251223
  Receipt Date: 20251223
  Transmission Date: 20260117
  Serious: Yes (Hospitalization, Other)
  Sender: ALEXION PHARMACEUTICALS
  Company Number: US-AstraZeneca-CH-01002364A

PATIENT
  Age: 42 Year
  Sex: Female
  Weight: 104.8 kg

DRUGS (2)
  1. TEZSPIRE [Suspect]
     Active Substance: TEZEPELUMAB-EKKO
     Dosage: 210 MILLIGRAM, Q4W
  2. TEZSPIRE [Suspect]
     Active Substance: TEZEPELUMAB-EKKO

REACTIONS (40)
  - Asthma [Recovering/Resolving]
  - Cough [Unknown]
  - Dyspnoea exertional [Unknown]
  - Adverse event [Unknown]
  - Dyspnoea [Unknown]
  - Device delivery system issue [Unknown]
  - Hypoxia [Unknown]
  - Wheezing [Unknown]
  - Surgery [Unknown]
  - Reaction to excipient [Unknown]
  - Pain [Unknown]
  - Anxiety [Unknown]
  - Arthritis [Unknown]
  - Oedema [Unknown]
  - Obesity [Unknown]
  - Back pain [Unknown]
  - Intervertebral disc degeneration [Unknown]
  - Depression [Unknown]
  - Fall [Unknown]
  - Flatulence [Unknown]
  - Gastrooesophageal reflux disease [Unknown]
  - Deafness bilateral [Unknown]
  - Blood cholesterol increased [Unknown]
  - Hypothyroidism [Unknown]
  - Hypoxia [Unknown]
  - Impaired gastric emptying [Unknown]
  - Skin injury [Unknown]
  - Mood swings [Unknown]
  - Nausea [Unknown]
  - Vomiting [Unknown]
  - Neuropathy peripheral [Unknown]
  - Thyroid cancer [Unknown]
  - Rash [Unknown]
  - Rhinitis [Unknown]
  - Schwannoma [Unknown]
  - Tachycardia [Unknown]
  - Umbilical hernia [Unknown]
  - Abnormal uterine bleeding [Unknown]
  - Device malfunction [Unknown]
  - Apnoea [Unknown]
